FAERS Safety Report 7654336-1 (Version None)
Quarter: 2011Q3

REPORT INFORMATION
  Report Type: 
  Country: None (occurrence: None)
  Receive Date: 20110728
  Receipt Date: 20110718
  Transmission Date: 20111222
  Serious: Yes (Death, Other)
  Sender: FDA-Public Use
  Company Number: 2011P1007877

PATIENT
  Age: 33 Day
  Sex: Female
  Weight: 3.1 kg

DRUGS (1)
  1. FENTANYL [Suspect]
     Indication: ANALGESIC THERAPY
     Dosage: 2 UG/KG;QH;IV
     Route: 042

REACTIONS (1)
  - MECONIUM ILEUS [None]
